FAERS Safety Report 13751479 (Version 1)
Quarter: 2017Q3

REPORT INFORMATION
  Report Type: Spontaneous
  Country: US (occurrence: US)
  Receive Date: 20170713
  Receipt Date: 20170713
  Transmission Date: 20171127
  Serious: No
  Sender: FDA-Public Use
  Company Number: US-ASTELLAS-2017US017765

PATIENT
  Age: 95 Year
  Sex: Male

DRUGS (1)
  1. MYRBETRIQ [Suspect]
     Active Substance: MIRABEGRON
     Indication: INCONTINENCE
     Dosage: 50 MG, ONCE DAILY (AT BEDTIME)
     Route: 065
     Dates: start: 201704

REACTIONS (2)
  - Drug effect incomplete [Unknown]
  - Intentional product misuse [Unknown]
